FAERS Safety Report 24292667 (Version 1)
Quarter: 2024Q3

REPORT INFORMATION
  Report Type: Spontaneous
  Country: CA (occurrence: CA)
  Receive Date: 20240906
  Receipt Date: 20240906
  Transmission Date: 20241017
  Serious: Yes (Other)
  Sender: BIOMARIN
  Company Number: CA-BIOMARINAP-CA-2024-160323

PATIENT

DRUGS (7)
  1. VIMIZIM [Suspect]
     Active Substance: ELOSULFASE ALFA
     Indication: Mucopolysaccharidosis IV
     Dosage: 2 MILLIGRAM/KILOGRAM, QW
     Route: 042
     Dates: start: 20150820
  2. EMLA [Concomitant]
     Active Substance: LIDOCAINE\PRILOCAINE
     Indication: Premedication
     Dosage: UNK, SINGLE
     Route: 003
  3. BACLOFEN [Concomitant]
     Active Substance: BACLOFEN
     Indication: Product used for unknown indication
     Route: 065
  4. TYLENOL [Concomitant]
     Active Substance: ACETAMINOPHEN
     Indication: Pain
     Dosage: UNK, PRN
     Route: 065
  5. TYLENOL [Concomitant]
     Active Substance: ACETAMINOPHEN
     Indication: Pyrexia
  6. ADVIL [Concomitant]
     Active Substance: IBUPROFEN\IBUPROFEN SODIUM
     Indication: Pain
     Dosage: UNK, PRN
     Route: 065
  7. ADVIL [Concomitant]
     Active Substance: IBUPROFEN\IBUPROFEN SODIUM
     Indication: Pyrexia

REACTIONS (2)
  - Abdominal operation [Unknown]
  - Gait disturbance [Unknown]
